FAERS Safety Report 9754268 (Version 1)
Quarter: 2013Q4

REPORT INFORMATION
  Report Type: Spontaneous
  Country: US (occurrence: US)
  Receive Date: 20131213
  Receipt Date: 20131213
  Transmission Date: 20140711
  Serious: No
  Sender: FDA-Public Use
  Company Number: US-TEVA-408675USA

PATIENT
  Age: 21 Year
  Sex: Female

DRUGS (3)
  1. PARAGARD 380A [Suspect]
     Indication: CONTRACEPTION
     Route: 015
     Dates: end: 20130523
  2. ZYRTEC [Concomitant]
     Indication: HYPERSENSITIVITY
  3. CYTOTEC [Concomitant]
     Indication: PREMEDICATION

REACTIONS (1)
  - Device expulsion [Recovered/Resolved]
